FAERS Safety Report 24839320 (Version 2)
Quarter: 2025Q1

REPORT INFORMATION
  Report Type: Report from Study
  Country: CA (occurrence: CA)
  Receive Date: 20250114
  Receipt Date: 20250217
  Transmission Date: 20250409
  Serious: Yes (Hospitalization)
  Sender: ABBVIE
  Company Number: CA-ABBVIE-6084236

PATIENT
  Sex: Male

DRUGS (1)
  1. SKYRIZI [Suspect]
     Active Substance: RISANKIZUMAB-RZAA
     Indication: Crohn^s disease
     Dosage: INJECT 360MG ?SUBCUTANEOUSLY AT WEEK 12 AND EVERY 8 WEEKS THEREAFTER USING ON-BODY ?INJECTOR
     Route: 058
     Dates: start: 20240923

REACTIONS (1)
  - Gastrointestinal disorder [Unknown]
